FAERS Safety Report 12805504 (Version 1)
Quarter: 2016Q4

REPORT INFORMATION
  Report Type: Spontaneous
  Country: US (occurrence: US)
  Receive Date: 20161004
  Receipt Date: 20161004
  Transmission Date: 20170207
  Serious: No
  Sender: FDA-Public Use
  Company Number: US-BAYER-2016-189501

PATIENT
  Sex: Male

DRUGS (3)
  1. DULCOLAX (DOCUSATE SODIUM) [Concomitant]
     Active Substance: DOCUSATE SODIUM
  2. DULCOLAX (DOCUSATE SODIUM) [Concomitant]
     Active Substance: DOCUSATE SODIUM
     Dosage: 2 DULCOLAX TABLETS AT 2:00, MIXED AN UNSPECIFIED AMOUNT OF MIRALAX WITH 1/2 GALLON OF LIQUID
     Dates: start: 20160928, end: 20160928
  3. MIRALAX [Suspect]
     Active Substance: POLYETHYLENE GLYCOL 3350
     Indication: COLONOSCOPY
     Dosage: 2 DULCOLAX TABLETS AT 2:00, MIXED AN UNSPECIFIED AMOUNT OF MIRALAX WITH 1/2 GALLON OF LIQUID
     Route: 048
     Dates: start: 20160928, end: 20160928

REACTIONS (2)
  - Off label use [None]
  - Constipation [None]

NARRATIVE: CASE EVENT DATE: 20160928
